FAERS Safety Report 6848376-X (Version None)
Quarter: 2010Q3

REPORT INFORMATION
  Report Type: 
  Country: None (occurrence: None)
  Receive Date: 20100716
  Receipt Date: 20100706
  Transmission Date: 20110219
  Serious: Yes (Other)
  Sender: FDA-Public Use
  Company Number: US-ROCHE-714898

PATIENT
  Age: 49 Year
  Sex: Female

DRUGS (4)
  1. AVASTIN [Suspect]
     Indication: COLON CANCER STAGE IV
     Dosage: INTURRUPTED FOR 6 MONTHS
     Route: 065
     Dates: start: 20070101, end: 20090101
  2. AVASTIN [Suspect]
     Route: 065
     Dates: start: 20100101
  3. FOLFOX REGIMEN [Concomitant]
  4. IRINOTECAN HCL [Concomitant]

REACTIONS (1)
  - METASTASES TO SPINE [None]
